FAERS Safety Report 8622563-2 (Version None)
Quarter: 2012Q3

REPORT INFORMATION
  Report Type: 
  Country: None (occurrence: None)
  Receive Date: 20120809
  Receipt Date: 20120725
  Transmission Date: 20120928
  Serious: Yes (Death, Other)
  Sender: FDA-Public Use
  Company Number: 2012MA009144

PATIENT
  Sex: Male

DRUGS (2)
  1. CODEINE SULFATE [Suspect]
  2. KADIAN [Suspect]

REACTIONS (4)
  - ASPIRATION TRACHEAL [None]
  - PULMONARY HAEMORRHAGE [None]
  - OVERDOSE [None]
  - PULMONARY OEDEMA [None]
